FAERS Safety Report 15546083 (Version 1)
Quarter: 2018Q4

REPORT INFORMATION
  Report Type: Spontaneous
  Country: JP (occurrence: JP)
  Receive Date: 20181024
  Receipt Date: 20181024
  Transmission Date: 20190205
  Serious: Yes (Other)
  Sender: FDA-Public Use
  Company Number: JP-TEVA-2018-JP-964800

PATIENT
  Age: 10 Year
  Sex: Female

DRUGS (4)
  1. DEXAMETHASONE. [Concomitant]
     Active Substance: DEXAMETHASONE
  2. VESANOID [Concomitant]
     Active Substance: TRETINOIN
  3. CYLOCIDE 100MG [Suspect]
     Active Substance: CYTARABINE
     Indication: LEUKOCYTOSIS
     Route: 065
  4. TRISENOX [Suspect]
     Active Substance: ARSENIC TRIOXIDE
     Route: 065

REACTIONS (2)
  - Electrocardiogram QT prolonged [Unknown]
  - Leukopenia [Unknown]
